FAERS Safety Report 8590385 (Version 3)
Quarter: 2013Q1

REPORT INFORMATION
  Report Type: Spontaneous
  Country: FR (occurrence: FR)
  Receive Date: 20120601
  Receipt Date: 20130111
  Transmission Date: 20140127
  Serious: Yes (Death, Life-Threatening, Hospitalization, Other)
  Sender: FDA-Public Use
  Company Number: PHHY2012FR045770

PATIENT
  Age: 77 Year
  Sex: Male

DRUGS (2)
  1. METHYLPREDNISOLONE [Suspect]
     Indication: CHRONIC LYMPHOCYTIC LEUKAEMIA
     Dosage: 80 MG, QD
  2. CHLORAMBUCIL [Concomitant]
     Indication: CHRONIC LYMPHOCYTIC LEUKAEMIA

REACTIONS (28)
  - Pulmonary embolism [Fatal]
  - Respiratory distress [Unknown]
  - Homicide [Unknown]
  - Acute psychosis [Unknown]
  - Disorientation [Unknown]
  - Euphoric mood [Unknown]
  - Abnormal behaviour [Unknown]
  - Affect lability [Unknown]
  - Delirium [Unknown]
  - Violence-related symptom [Unknown]
  - Hallucination, visual [Unknown]
  - Dissociative disorder [Unknown]
  - Confusional state [Unknown]
  - Anxiety [Unknown]
  - Nervousness [Unknown]
  - Major depression [Unknown]
  - Poor quality sleep [Unknown]
  - Memory impairment [Unknown]
  - Suicidal ideation [Unknown]
  - Disturbance in attention [Unknown]
  - Delusion [Unknown]
  - Psychomotor hyperactivity [Unknown]
  - Amnesia [Unknown]
  - Retrograde amnesia [Unknown]
  - Feeling abnormal [Unknown]
  - Hyponatraemia [Unknown]
  - Pneumonia [Unknown]
  - General physical health deterioration [Unknown]
